FAERS Safety Report 7900568-4 (Version None)
Quarter: 2011Q4

REPORT INFORMATION
  Report Type: 
  Country: None (occurrence: None)
  Receive Date: 20111108
  Receipt Date: 20111021
  Transmission Date: 20120403
  Serious: Yes (Hospitalization)
  Sender: FDA-Public Use
  Company Number: US-BAYER-2011-074165

PATIENT
  Age: 33 Year
  Sex: Female
  Weight: 68.027 kg

DRUGS (4)
  1. VICODIN [Concomitant]
     Indication: PREMENSTRUAL SYNDROME
     Dosage: UNK UNK, PRN
     Dates: start: 20080501, end: 20091201
  2. YASMIN [Suspect]
  3. YASMIN [Suspect]
     Indication: PREMENSTRUAL SYNDROME
     Dosage: UNK
     Dates: start: 20080501, end: 20091201
  4. VICODIN [Concomitant]

REACTIONS (7)
  - CHOLELITHIASIS [None]
  - INJURY [None]
  - CHOLECYSTITIS INFECTIVE [None]
  - BILE DUCT STONE [None]
  - EMOTIONAL DISTRESS [None]
  - CHOLECYSTITIS CHRONIC [None]
  - PAIN [None]
